FAERS Safety Report 7101240-3 (Version None)
Quarter: 2010Q4

REPORT INFORMATION
  Report Type: 
  Country: None (occurrence: None)
  Receive Date: 20101115
  Receipt Date: 20101103
  Transmission Date: 20110411
  Serious: Yes (Hospitalization)
  Sender: FDA-Public Use
  Company Number: US-JNJFOC-20101102319

PATIENT
  Sex: Male
  Weight: 122.47 kg

DRUGS (4)
  1. DURAGESIC-100 [Suspect]
     Indication: BACK PAIN
     Dosage: 100 UG/HR + 100 UG/HR
     Route: 062
  2. DURAGESIC-100 [Suspect]
     Dosage: 100 UG/HR + 100 UG/HR, NDC#50458-094-05
     Route: 062
  3. NUCYNTA [Concomitant]
     Indication: PAIN
     Route: 048
  4. OXYCONTIN [Concomitant]
     Indication: BREAKTHROUGH PAIN
     Route: 048

REACTIONS (10)
  - APPLICATION SITE EXFOLIATION [None]
  - APPLICATION SITE REACTION [None]
  - DRUG ADMINISTERED AT INAPPROPRIATE SITE [None]
  - INTERVERTEBRAL DISC PROTRUSION [None]
  - NERVE COMPRESSION [None]
  - PRODUCT ADHESION ISSUE [None]
  - THERAPEUTIC RESPONSE DECREASED [None]
  - THERAPY CESSATION [None]
  - WITHDRAWAL SYNDROME [None]
  - WRONG TECHNIQUE IN DRUG USAGE PROCESS [None]
